FAERS Safety Report 7357335-2 (Version None)
Quarter: 2011Q1

REPORT INFORMATION
  Report Type: 
  Country: None (occurrence: None)
  Receive Date: 20110308
  Receipt Date: 20110222
  Transmission Date: 20110831
  Serious: Yes (Other)
  Sender: FDA-Public Use
  Company Number: 2011P1004567

PATIENT
  Age: 19 Year
  Sex: Female

DRUGS (1)
  1. TERBINAFINE 250 MG (NO PREF. NAME) [Suspect]
     Indication: TINEA INFECTION
     Dosage: 1 TABLET;QD;PO
     Route: 048
     Dates: start: 20110129, end: 20110130

REACTIONS (5)
  - URTICARIA [None]
  - LYMPHADENOPATHY [None]
  - SWOLLEN TONGUE [None]
  - PRURITUS [None]
  - ORAL DISCOMFORT [None]
